FAERS Safety Report 16830643 (Version 1)
Quarter: 2019Q3

REPORT INFORMATION
  Report Type: Spontaneous
  Country: US (occurrence: US)
  Receive Date: 20190729
  Receipt Date: 20190729
  Transmission Date: 20191005
  Serious: Yes (Hospitalization)
  Sender: FDA-Public Use
  Company Number: None

PATIENT
  Age: 78 Year
  Sex: Male
  Weight: 96.34 kg

DRUGS (1)
  1. PIOGLITAZONE. [Suspect]
     Active Substance: PIOGLITAZONE
     Indication: DIABETES MELLITUS
     Dates: start: 20080520, end: 20190617

REACTIONS (4)
  - Lethargy [None]
  - Acute kidney injury [None]
  - Hypotension [None]
  - Cardiac failure chronic [None]

NARRATIVE: CASE EVENT DATE: 20190602
